FAERS Safety Report 4524875-0 (Version None)
Quarter: 2004Q4

REPORT INFORMATION
  Report Type: 
  Country: None (occurrence: None)
  Receive Date: 20041117
  Receipt Date: 20040114
  Transmission Date: 20050328
  Serious: Yes (Other)
  Sender: FDA-Public Use
  Company Number: 2004S1000142

PATIENT
  Age: 25 Year
  Sex: Male

DRUGS (4)
  1. CLOZAPINE [Suspect]
     Indication: AFFECTIVE DISORDER
     Dosage: 25MG QD, ORAL
     Route: 048
     Dates: start: 20031125, end: 20040105
  2. CLOZAPINE [Suspect]
     Indication: PERSONALITY DISORDER
     Dosage: 25MG QD, ORAL
     Route: 048
     Dates: start: 20031125, end: 20040105
  3. FERROUS SULTATE [Concomitant]
  4. PROPRANOLOL [Concomitant]

REACTIONS (2)
  - AGRANULOCYTOSIS [None]
  - LEUKOPENIA [None]
